FAERS Safety Report 4890351-9 (Version None)
Quarter: 2005Q4

REPORT INFORMATION
  Report Type: 
  Country: None (occurrence: None)
  Receive Date: 20051220
  Receipt Date: 20051101
  Transmission Date: 20060501
  Serious: Yes (Other)
  Sender: FDA-Public Use
  Company Number: 408388

PATIENT
  Age: 84 Year
  Sex: Female

DRUGS (4)
  1. BONIVA [Suspect]
     Dosage: 1 PER MONTH ORAL
     Route: 048
     Dates: start: 20050612
  2. SYNTHROID [Concomitant]
  3. BETIMOL (TIMOLOL) [Concomitant]
  4. TRAVATAN [Concomitant]

REACTIONS (3)
  - DIARRHOEA [None]
  - NAUSEA [None]
  - PAIN IN EXTREMITY [None]
